FAERS Safety Report 21465475 (Version 1)
Quarter: 2022Q4

REPORT INFORMATION
  Report Type: Spontaneous
  Country: US (occurrence: US)
  Receive Date: 20221017
  Receipt Date: 20221017
  Transmission Date: 20230113
  Serious: No
  Sender: FDA-Public Use
  Company Number: US-LUPIN PHARMACEUTICALS INC.-2022-12009

PATIENT

DRUGS (1)
  1. NIKKI [Suspect]
     Active Substance: DROSPIRENONE\ETHINYL ESTRADIOL
     Indication: Oral contraception
     Dosage: UNK
     Route: 048
     Dates: start: 20220807, end: 20220913

REACTIONS (2)
  - Panic attack [Unknown]
  - Condition aggravated [Unknown]
